FAERS Safety Report 18249852 (Version 5)
Quarter: 2020Q4

REPORT INFORMATION
  Report Type: Spontaneous
  Country: US (occurrence: US)
  Receive Date: 20200909
  Receipt Date: 20201125
  Transmission Date: 20210113
  Serious: Yes (Other)
  Sender: FDA-Public Use
  Company Number: US-AMERICAN REGENT INC-2020001839

PATIENT
  Sex: Female

DRUGS (3)
  1. ESTRADIOL VALERATE INJECTION, USP (0870-05) [Suspect]
     Active Substance: ESTRADIOL VALERATE
     Indication: BLOOD OESTROGEN INCREASED
     Dosage: 5 MG, 1 Q 2 WEEKS
     Dates: start: 2020
  2. ESTRADIOL VALERATE INJECTION, USP (0870-05) [Suspect]
     Active Substance: ESTRADIOL VALERATE
     Indication: PROGESTERONE ABNORMAL
     Dosage: UNK
     Route: 065
     Dates: start: 2020
  3. ESTRADIOL VALERATE INJECTION, USP (0870-05) [Suspect]
     Active Substance: ESTRADIOL VALERATE
     Dosage: 4 MG, 1 Q 2 WEEKS
     Dates: start: 2020

REACTIONS (5)
  - Hyperhidrosis [Unknown]
  - Product quality issue [Unknown]
  - Product use in unapproved indication [Unknown]
  - Keratosis follicular [Not Recovered/Not Resolved]
  - Insomnia [Not Recovered/Not Resolved]

NARRATIVE: CASE EVENT DATE: 2020
